FAERS Safety Report 14991876 (Version 1)
Quarter: 2018Q2

REPORT INFORMATION
  Report Type: Spontaneous
  Country: KZ (occurrence: KZ)
  Receive Date: 20180608
  Receipt Date: 20180608
  Transmission Date: 20180711
  Serious: Yes (Life-Threatening, Hospitalization, Other)
  Sender: FDA-Public Use
  Company Number: PHHY2018KZ017993

PATIENT
  Age: 34 Year
  Sex: Female
  Weight: 46 kg

DRUGS (4)
  1. LINEZOLID. [Suspect]
     Active Substance: LINEZOLID
     Indication: TUBERCULOSIS
     Dosage: 600 MG, QD
     Route: 065
     Dates: start: 20161214
  2. CLOFAZIMINE [Suspect]
     Active Substance: CLOFAZIMINE
     Indication: TUBERCULOSIS
     Dosage: 200 MG, QD
     Route: 065
     Dates: start: 20161214
  3. LEVOFLOXACIN. [Suspect]
     Active Substance: LEVOFLOXACIN
     Indication: TUBERCULOSIS
     Dosage: 750 MG, QD
     Route: 065
     Dates: start: 20161214
  4. DELAMANID [Suspect]
     Active Substance: DELAMANID
     Indication: TUBERCULOSIS
     Dosage: 200 OT, UNK
     Route: 065
     Dates: start: 20161214, end: 20170112

REACTIONS (17)
  - Dry mouth [Unknown]
  - Vomiting [Unknown]
  - Cholangitis [Recovering/Resolving]
  - Gallbladder enlargement [Unknown]
  - Electrocardiogram T wave inversion [Unknown]
  - Musculoskeletal pain [Unknown]
  - Heart rate increased [Unknown]
  - Fibrosis [Unknown]
  - Pancreatitis [Recovering/Resolving]
  - Syncope [Unknown]
  - Sinus tachycardia [Unknown]
  - Abdominal pain [Unknown]
  - Bile duct stone [Recovering/Resolving]
  - Jaundice [Recovering/Resolving]
  - Cholecystitis acute [Recovering/Resolving]
  - Nausea [Unknown]
  - Cholecystitis infective [Recovering/Resolving]

NARRATIVE: CASE EVENT DATE: 20180404
